FAERS Safety Report 6023746-0 (Version None)
Quarter: 2008Q4

REPORT INFORMATION
  Report Type: 
  Country: None (occurrence: None)
  Receive Date: 20081230
  Receipt Date: 20081223
  Transmission Date: 20090506
  Serious: Yes (Other)
  Sender: FDA-Public Use
  Company Number: US-JNJFOC-20081206361

PATIENT
  Age: 36 Year
  Sex: Female
  Weight: 68.04 kg

DRUGS (2)
  1. TOPAMAX [Suspect]
     Indication: EPILEPSY
     Route: 048
  2. TEGRETOL [Concomitant]
     Indication: EPILEPSY

REACTIONS (2)
  - MYODESOPSIA [None]
  - PARAESTHESIA [None]
